FAERS Safety Report 11150834 (Version 1)
Quarter: 2015Q2

REPORT INFORMATION
  Report Type: Spontaneous
  Country: US (occurrence: None)
  Receive Date: 20150528
  Receipt Date: 20150528
  Transmission Date: 20150821
  Serious: Yes (Death)
  Sender: FDA-Public Use
  Company Number: CIO15032729

PATIENT
  Age: 36 Year
  Sex: Female

DRUGS (2)
  1. P+GUNKNONPGDPHNPGZDPH#(DIPHENHYDRAMINE HYDROCHLORIDE UNK UNK) UNKNOWN, UNKUNK [Suspect]
     Active Substance: DIPHENHYDRAMINE HYDROCHLORIDE
  2. FENTANYL (FENTANYL) [Suspect]
     Active Substance: FENTANYL

REACTIONS (6)
  - Unresponsive to stimuli [None]
  - Intentional product misuse [None]
  - Drug level increased [None]
  - Rhinorrhoea [None]
  - Intentional overdose [None]
  - Wrong technique in drug usage process [None]
